FAERS Safety Report 9225524 (Version 1)
Quarter: 2013Q2

REPORT INFORMATION
  Report Type: Spontaneous
  Country: DK (occurrence: DE)
  Receive Date: 20130411
  Receipt Date: 20130411
  Transmission Date: 20140414
  Serious: Yes (Hospitalization)
  Sender: FDA-Public Use
  Company Number: DE-FRI-1000044165

PATIENT
  Age: 72 Year
  Sex: Female

DRUGS (9)
  1. ESCITALOPRAM [Suspect]
     Indication: DEPRESSION
     Dosage: 40 MG
     Route: 048
     Dates: end: 20100515
  2. TRAMAL [Interacting]
     Indication: PAIN
     Dosage: 100 MG
     Dates: start: 20100511, end: 20100513
  3. TRAMAL [Interacting]
     Indication: INTERVERTEBRAL DISC PROTRUSION
     Dosage: 150 MG
     Dates: start: 20100514, end: 20100515
  4. TAVOR [Concomitant]
     Dosage: 0.5 MG
  5. ASCOTOP [Concomitant]
  6. ASS [Concomitant]
     Dosage: 100 MG
  7. BISOPROLOL [Concomitant]
     Dosage: 10 MG
  8. DICLO KD [Concomitant]
     Dosage: 75 MG
  9. PANTOPRAZOL [Concomitant]
     Dosage: 40 MG

REACTIONS (4)
  - Delirium [Recovered/Resolved]
  - Toxicity to various agents [Recovered/Resolved]
  - Drug interaction [Recovered/Resolved]
  - Prescribed overdose [Recovered/Resolved]
